FAERS Safety Report 9405462 (Version 1)
Quarter: 2013Q3

REPORT INFORMATION
  Report Type: Spontaneous
  Country: RO (occurrence: RO)
  Receive Date: 20130717
  Receipt Date: 20130717
  Transmission Date: 20140515
  Serious: Yes (Other)
  Sender: FDA-Public Use
  Company Number: RO-ACTAVIS-2013-12151

PATIENT
  Age: 15 Year
  Sex: Male
  Weight: 67 kg

DRUGS (5)
  1. MYCOPHENOLATE MOFETIL (UNKNOWN) [Suspect]
     Indication: IMMUNOMODULATORY THERAPY
     Dosage: 1.5 G, DAILY
     Route: 065
  2. MYCOPHENOLATE MOFETIL (UNKNOWN) [Suspect]
     Dosage: 3 G, DAILY
     Route: 065
  3. TACROLIMUS (UNKNOWN) [Suspect]
     Indication: IMMUNOMODULATORY THERAPY
     Dosage: 5 MG, DAILY
     Route: 065
  4. PREDNISONE (UNKNOWN) [Suspect]
     Indication: IMMUNOMODULATORY THERAPY
     Dosage: 20 MG, DAILY
     Route: 065
  5. PREDNISONE (UNKNOWN) [Suspect]
     Dosage: 1 MG/KG, DAILY
     Route: 065

REACTIONS (2)
  - Diabetes mellitus [Recovered/Resolved]
  - Diabetic ketoacidosis [Recovered/Resolved]
